FAERS Safety Report 16782507 (Version 1)
Quarter: 2019Q3

REPORT INFORMATION
  Report Type: Spontaneous
  Country: FR (occurrence: FR)
  Receive Date: 20190906
  Receipt Date: 20190906
  Transmission Date: 20191005
  Serious: Yes (Life-Threatening)
  Sender: FDA-Public Use
  Company Number: FR-MYLANLABS-2019M1083879

PATIENT
  Age: 23 Year
  Sex: Female
  Weight: 90 kg

DRUGS (4)
  1. SUFENTANIL MYLAN [Suspect]
     Active Substance: SUFENTANIL
     Indication: INDUCTION OF ANAESTHESIA
     Dosage: 20 MICROGRAM, TOTAL
     Route: 042
     Dates: start: 20190318, end: 20190318
  2. CISATRACURIUM MYLAN [Suspect]
     Active Substance: CISATRACURIUM
     Indication: INDUCTION OF ANAESTHESIA
     Dosage: 6 MILLIGRAM, TOTAL
     Route: 042
     Dates: start: 20190318, end: 20190318
  3. DEXAMETHASONE MYLAN [Suspect]
     Active Substance: DEXAMETHASONE
     Indication: INDUCTION OF ANAESTHESIA
     Dosage: 4 MILLIGRAM, TOTAL
     Route: 042
     Dates: start: 20190318, end: 20190318
  4. PROPOFOL. [Suspect]
     Active Substance: PROPOFOL
     Indication: INDUCTION OF ANAESTHESIA
     Dosage: 200 MILLIGRAM, TOTAL
     Route: 042
     Dates: start: 20190318, end: 20190318

REACTIONS (3)
  - Bronchospasm [Recovered/Resolved]
  - Tachycardia [Recovered/Resolved]
  - Rash [Recovered/Resolved]

NARRATIVE: CASE EVENT DATE: 20190318
